FAERS Safety Report 10589790 (Version 1)
Quarter: 2014Q4

REPORT INFORMATION
  Report Type: Spontaneous
  Country: US (occurrence: None)
  Receive Date: 20141117
  Receipt Date: 20141117
  Transmission Date: 20150529
  Serious: No
  Sender: FDA-Public Use
  Company Number: None

PATIENT
  Age: 29 Year
  Sex: Female

DRUGS (1)
  1. DEPO-PROVERA [Suspect]
     Active Substance: MEDROXYPROGESTERONE ACETATE

REACTIONS (9)
  - Panic attack [None]
  - Headache [None]
  - Tachycardia [None]
  - Chest pain [None]
  - Abdominal pain [None]
  - Abdominal pain upper [None]
  - Amenorrhoea [None]
  - Abortion spontaneous [None]
  - Agoraphobia [None]

NARRATIVE: CASE EVENT DATE: 20090828
